FAERS Safety Report 20674148 (Version 1)
Quarter: 2022Q2

REPORT INFORMATION
  Report Type: Spontaneous
  Country: AR (occurrence: AR)
  Receive Date: 20220405
  Receipt Date: 20220405
  Transmission Date: 20220721
  Serious: Yes (Other)
  Sender: FDA-Public Use
  Company Number: AR-PFIZER INC-202200282966

PATIENT
  Age: 66 Year
  Sex: Male

DRUGS (1)
  1. SUTENT [Suspect]
     Active Substance: SUNITINIB MALATE
     Dosage: UNK

REACTIONS (7)
  - Nephrectomy [Unknown]
  - Pruritus [Unknown]
  - Blood urea increased [Unknown]
  - Blood creatine increased [Unknown]
  - Nausea [Unknown]
  - Hair colour changes [Unknown]
  - Tooth disorder [Unknown]
